FAERS Safety Report 9738840 (Version 1)
Quarter: 2013Q4

REPORT INFORMATION
  Report Type: Spontaneous
  Country: US (occurrence: US)
  Receive Date: 20131209
  Receipt Date: 20131209
  Transmission Date: 20140711
  Serious: No
  Sender: FDA-Public Use
  Company Number: US-PFIZER INC-2013346114

PATIENT
  Age: 56 Year
  Sex: Female

DRUGS (6)
  1. BOSULIF [Suspect]
     Indication: LEUKAEMIA
     Dosage: 500 MG, DAILY
     Route: 048
     Dates: start: 201311, end: 2013
  2. ALPRAZOLAM [Concomitant]
     Dosage: UNK
  3. DOCUSATE SODIUM [Concomitant]
     Dosage: UNK
  4. OXYCONTIN [Concomitant]
     Dosage: UNK
  5. METHADONE [Concomitant]
     Dosage: UNK
  6. ALBUTEROL [Concomitant]
     Dosage: UNK

REACTIONS (2)
  - Diarrhoea [Unknown]
  - Nausea [Unknown]
